FAERS Safety Report 7823651-0 (Version None)
Quarter: 2011Q4

REPORT INFORMATION
  Report Type: 
  Country: None (occurrence: None)
  Receive Date: 20111019
  Receipt Date: 20111019
  Transmission Date: 20120403
  Serious: Yes (Hospitalization, Other)
  Sender: FDA-Public Use
  Company Number: None

PATIENT
  Age: 76 Year
  Sex: Male
  Weight: 96.161 kg

DRUGS (2)
  1. SIMVASTATIN [Suspect]
     Indication: LOW DENSITY LIPOPROTEIN DECREASED
     Dosage: 80 MG
     Route: 048
     Dates: start: 20080127, end: 20100815
  2. SIMVASTATIN [Suspect]
     Indication: BLOOD CHOLESTEROL DECREASED
     Dosage: 80 MG
     Route: 048
     Dates: start: 20080127, end: 20100815

REACTIONS (17)
  - POLLAKIURIA [None]
  - GAIT DISTURBANCE [None]
  - MYALGIA [None]
  - MUSCULOSKELETAL STIFFNESS [None]
  - QUADRIPLEGIA [None]
  - MUSCLE CONTRACTIONS INVOLUNTARY [None]
  - RESTLESSNESS [None]
  - INDURATION [None]
  - PRODUCT ODOUR ABNORMAL [None]
  - DYSKINESIA [None]
  - MUSCLE SPASMS [None]
  - MUSCULAR WEAKNESS [None]
  - NOCTURIA [None]
  - DIZZINESS [None]
  - BONE PAIN [None]
  - PAIN IN EXTREMITY [None]
  - INSOMNIA [None]
